FAERS Safety Report 12461046 (Version 3)
Quarter: 2016Q4

REPORT INFORMATION
  Report Type: Spontaneous
  Country: NL (occurrence: NL)
  Receive Date: 20160613
  Receipt Date: 20161006
  Transmission Date: 20170207
  Serious: Yes (Other)
  Sender: FDA-Public Use
  Company Number: NL-TEVA-665710ISR

PATIENT
  Age: 55 Year
  Sex: Female

DRUGS (5)
  1. OLANZAPINE TEVA FIM COATED TABLET 2,5MG [Suspect]
     Active Substance: OLANZAPINE
     Indication: PERSONALITY DISORDER
     Route: 048
     Dates: start: 201601, end: 201608
  2. ATROPINESULFAAT EYE DROPS [Concomitant]
  3. VALACICLOVIR [Concomitant]
     Active Substance: VALACYCLOVIR HYDROCHLORIDE
     Route: 048
  4. PRED FORTE EYE DROPS [Concomitant]
  5. ACICLOVIR TEVA EYE OINTMENT [Concomitant]

REACTIONS (11)
  - Eye infection intraocular [Not Recovered/Not Resolved]
  - Myalgia [Not Recovered/Not Resolved]
  - Blood test abnormal [Not Recovered/Not Resolved]
  - Headache [Recovering/Resolving]
  - Blindness [Not Recovered/Not Resolved]
  - Musculoskeletal stiffness [Not Recovered/Not Resolved]
  - Fibromyalgia [Not Recovered/Not Resolved]
  - Constipation [Not Recovered/Not Resolved]
  - Herpes zoster [Not Recovered/Not Resolved]
  - Fatigue [Not Recovered/Not Resolved]
  - Headache [Not Recovered/Not Resolved]

NARRATIVE: CASE EVENT DATE: 201604
